FAERS Safety Report 6441688-3 (Version None)
Quarter: 2009Q4

REPORT INFORMATION
  Report Type: 
  Country: None (occurrence: None)
  Receive Date: 20091116
  Receipt Date: 20091103
  Transmission Date: 20100525
  Serious: Yes (Hospitalization)
  Sender: FDA-Public Use
  Company Number: US-MERCK-0911USA00579

PATIENT
  Sex: Female

DRUGS (3)
  1. COSOPT [Suspect]
     Indication: GLAUCOMA
     Route: 047
     Dates: start: 20060101, end: 20090101
  2. COSOPT [Suspect]
     Route: 047
     Dates: start: 20090101
  3. LOTEMAX [Concomitant]
     Route: 065

REACTIONS (3)
  - CORNEAL DISORDER [None]
  - EYE IRRITATION [None]
  - LENS DISORDER [None]
